FAERS Safety Report 23805128 (Version 2)
Quarter: 2024Q2

REPORT INFORMATION
  Report Type: Report from Study
  Country: HU (occurrence: HU)
  Receive Date: 20240502
  Receipt Date: 20240511
  Transmission Date: 20240717
  Serious: Yes (Hospitalization)
  Sender: FDA-Public Use
  Company Number: HU-ABBVIE-5737466

PATIENT
  Age: 61 Year
  Sex: Female

DRUGS (9)
  1. CARBIDOPA\LEVODOPA [Suspect]
     Active Substance: CARBIDOPA\LEVODOPA
     Indication: Parkinson^s disease
     Dosage: MORNING DOSE: 4.5 ML; CONTINUOUS DOSE: 0.8 ML/HOUR; EXTRA DOSE: 0.8 ML
     Route: 050
     Dates: start: 20230522
  2. CARBIDOPA\LEVODOPA [Suspect]
     Active Substance: CARBIDOPA\LEVODOPA
  3. PANTOPRAZOLE [Concomitant]
     Active Substance: PANTOPRAZOLE
     Indication: Gastrooesophageal reflux disease
     Dosage: FORM STRENGTH WAS 40 MILLIGRAM
     Route: 048
     Dates: start: 202305
  4. FUROSEMIDE [Concomitant]
     Active Substance: FUROSEMIDE
     Indication: Hypertension
     Dosage: WEEKLY 80 MG (ONE TABLET ON TUESDAY, 1 TABLET ON FRIDAY)?FORM STRENGTH WAS 40 MILLIGRAMS
     Route: 048
     Dates: start: 2022
  5. VINPOCETINE [Concomitant]
     Active Substance: VINPOCETINE
     Indication: Memory impairment
     Dosage: FORM STRENGTH WAS 10 MILLIGRAM
     Route: 048
  6. ERIMEXOL [Concomitant]
     Indication: Parkinson^s disease
     Dosage: FORM STRENGTH WAS 1.05 MILLIGRAM
     Route: 048
     Dates: start: 2015
  7. ASPIRIN [Concomitant]
     Active Substance: ASPIRIN
     Indication: Prophylaxis
     Dosage: FORM STRENGTH WAS 100 MILLIGRAM
     Route: 048
     Dates: start: 2000
  8. RAMIPRIL [Concomitant]
     Active Substance: RAMIPRIL
     Indication: Hypertension
     Dosage: 5 MILLIGRAM??FORM STRENGTH WAS 2.5 MILLIGRAMS
     Route: 048
     Dates: start: 2000
  9. KALIUM-R [Concomitant]
     Indication: Hypertension
     Dosage: TWICE WEEKLY (ONE TABLET ON TUESDAY, 1 TABLET ON FRIDAY)
     Route: 048
     Dates: start: 2022

REACTIONS (2)
  - Renal cancer [Unknown]
  - Pulmonary mass [Not Recovered/Not Resolved]

NARRATIVE: CASE EVENT DATE: 20240304
